FAERS Safety Report 6684501-1 (Version None)
Quarter: 2010Q2

REPORT INFORMATION
  Report Type: 
  Country: None (occurrence: None)
  Receive Date: 20100416
  Receipt Date: 20100408
  Transmission Date: 20101027
  Serious: Yes (Other)
  Sender: FDA-Public Use
  Company Number: HU-BRISTOL-MYERS SQUIBB COMPANY-14963516

PATIENT
  Age: 59 Year
  Sex: Male

DRUGS (3)
  1. COAPROVEL TABS [Suspect]
     Indication: HYPERTENSION
     Dosage: 1DF=1TABLET.STRENGTH-300/12.5.DOSE CHANGED TO 2X1/2TABLET.THERAPY ONGOING.
     Route: 048
  2. BLOCALCIN [Concomitant]
     Indication: HYPERTENSION
  3. NITRODUR II [Concomitant]

REACTIONS (1)
  - ARTERIAL STENOSIS [None]
